FAERS Safety Report 7390197-6 (Version None)
Quarter: 2011Q2

REPORT INFORMATION
  Report Type: 
  Country: None (occurrence: None)
  Receive Date: 20110401
  Receipt Date: 20110323
  Transmission Date: 20111010
  Serious: Yes (Hospitalization)
  Sender: FDA-Public Use
  Company Number: US-ASTRAZENECA-2010SE31575

PATIENT
  Age: 58 Year
  Sex: Male
  Weight: 98.9 kg

DRUGS (18)
  1. OXYCODONE HCL AND ACETAMINOPHEN [Concomitant]
     Indication: INTERVERTEBRAL DISC PROTRUSION
  2. CARVEDILOL [Concomitant]
  3. CALCITRIOL [Concomitant]
  4. LEVAMINE [Concomitant]
  5. KLONAZEPAM [Concomitant]
  6. METOPROLOL [Concomitant]
  7. AVODART [Concomitant]
  8. ONGLYZA [Concomitant]
     Route: 048
  9. LORAZEPAM [Concomitant]
  10. ISOSORBIDE DINITRATE [Concomitant]
  11. SEROQUEL [Suspect]
     Indication: BIPOLAR DISORDER
     Route: 048
     Dates: start: 20080101
  12. CRESTOR [Concomitant]
     Route: 048
  13. METFORMIN [Concomitant]
  14. DETROL LA [Concomitant]
  15. FISH OIL [Concomitant]
  16. NOVALOG [Concomitant]
  17. LISINOPRIL [Concomitant]
  18. GEMFIBROZIL [Concomitant]

REACTIONS (5)
  - FISTULA REPAIR [None]
  - RENAL FAILURE [None]
  - WEIGHT DECREASED [None]
  - CARDIAC DISORDER [None]
  - BLOOD GLUCOSE INCREASED [None]
